FAERS Safety Report 5695760-6 (Version None)
Quarter: 2008Q2

REPORT INFORMATION
  Report Type: 
  Country: None (occurrence: None)
  Receive Date: 20080407
  Receipt Date: 20080331
  Transmission Date: 20081010
  Serious: Yes (Hospitalization)
  Sender: FDA-Public Use
  Company Number: US-BAYER-200818510NA

PATIENT
  Sex: Female
  Weight: 100 kg

DRUGS (1)
  1. SORAFENIB [Suspect]
     Indication: MESOTHELIOMA
     Dosage: TOTAL DAILY DOSE: 200 MG  UNIT DOSE: 200 MG
     Route: 048
     Dates: start: 20071128, end: 20071212

REACTIONS (2)
  - CEREBRAL HAEMORRHAGE [None]
  - CONVULSION [None]
